FAERS Safety Report 5733592-0 (Version None)
Quarter: 2008Q2

REPORT INFORMATION
  Report Type: 
  Country: None (occurrence: None)
  Receive Date: 20080509
  Receipt Date: 20080506
  Transmission Date: 20081010
  Serious: Yes (Hospitalization)
  Sender: FDA-Public Use
  Company Number: US-BRISTOL-MYERS SQUIBB COMPANY-14180467

PATIENT
  Age: 43 Year
  Sex: Male

DRUGS (4)
  1. ABILIFY [Suspect]
     Indication: MAJOR DEPRESSION
     Dosage: DOSAGE FORM: 5 MG-1/2 TABLETS FOR 7 DAYS THEN 1 TABLET PER DAY
     Dates: start: 20080312
  2. ABILIFY [Suspect]
     Indication: ANXIETY
     Dosage: DOSAGE FORM: 5 MG-1/2 TABLETS FOR 7 DAYS THEN 1 TABLET PER DAY
     Dates: start: 20080312
  3. CELEXA [Concomitant]
  4. CLONAZEPAM [Concomitant]

REACTIONS (10)
  - APHASIA [None]
  - BLOOD PRESSURE INCREASED [None]
  - COORDINATION ABNORMAL [None]
  - DIZZINESS [None]
  - DROOLING [None]
  - DYSARTHRIA [None]
  - DYSPHASIA [None]
  - HEADACHE [None]
  - HYPOAESTHESIA ORAL [None]
  - VISION BLURRED [None]
